FAERS Safety Report 5734885-3 (Version None)
Quarter: 2008Q2

REPORT INFORMATION
  Report Type: 
  Country: None (occurrence: None)
  Receive Date: 20080512
  Receipt Date: 20080508
  Transmission Date: 20081010
  Serious: Yes (Hospitalization, Disabling)
  Sender: FDA-Public Use
  Company Number: B0513926A

PATIENT
  Age: 44 Year
  Sex: Female
  Weight: 55 kg

DRUGS (3)
  1. AUGMENTIN '125' [Suspect]
     Indication: PNEUMONIA
     Dosage: 2MG PER DAY
     Route: 048
     Dates: start: 20080104, end: 20080109
  2. AMBROXOL [Concomitant]
     Indication: PNEUMONIA
     Dosage: 30MG THREE TIMES PER DAY
     Dates: start: 20080104, end: 20080109
  3. CLARITIN [Concomitant]
     Indication: PNEUMONIA
     Dosage: 10MG PER DAY
     Dates: start: 20080104, end: 20080104

REACTIONS (5)
  - HYPERAEMIA [None]
  - HYPERSENSITIVITY [None]
  - OEDEMA MUCOSAL [None]
  - RASH [None]
  - TOXIC SKIN ERUPTION [None]
